FAERS Safety Report 7731868-9 (Version None)
Quarter: 2011Q3

REPORT INFORMATION
  Report Type: 
  Country: None (occurrence: None)
  Receive Date: 20110906
  Receipt Date: 20110829
  Transmission Date: 20111222
  Serious: Yes (Hospitalization)
  Sender: FDA-Public Use
  Company Number: FR-PFIZER INC-2011176825

PATIENT
  Age: 62 Year
  Sex: Female
  Weight: 38 kg

DRUGS (5)
  1. ZYVOX [Suspect]
     Indication: TUBERCULOSIS
     Dosage: 600 MG, 2X/DAY
     Route: 048
     Dates: start: 20110122, end: 20110707
  2. CYCLOSERINE [Suspect]
     Indication: TUBERCULOSIS
     Dosage: 250 MG, 2X/DAY
     Route: 048
     Dates: start: 20110122, end: 20110707
  3. CYCLOSERINE [Suspect]
     Dosage: UNK
     Dates: start: 20110701, end: 20110722
  4. ADIAZINE [Suspect]
     Indication: TUBERCULOSIS
     Dosage: UNK
     Route: 048
     Dates: start: 20110322
  5. MYAMBUTOL [Suspect]
     Indication: TUBERCULOSIS
     Dosage: 400 MG, 2X/DAY
     Route: 048
     Dates: start: 20110122

REACTIONS (1)
  - CARDIAC FAILURE [None]
